FAERS Safety Report 25841017 (Version 1)
Quarter: 2025Q3

REPORT INFORMATION
  Report Type: Spontaneous
  Country: US (occurrence: None)
  Receive Date: 20250923
  Receipt Date: 20250923
  Transmission Date: 20251020
  Serious: Yes (Hospitalization)
  Sender: FDA-CTU
  Company Number: None

PATIENT
  Age: 66 Year
  Sex: Female
  Weight: 103.8 kg

DRUGS (15)
  1. BENLYSTA [Suspect]
     Active Substance: BELIMUMAB
     Indication: Systemic lupus erythematosus
     Dosage: OTHER FREQUENCY : ONCE A WEEK;?
     Route: 058
     Dates: start: 20231115
  2. VITAMINS [Concomitant]
     Active Substance: VITAMINS
  3. TYLENOL [Concomitant]
     Active Substance: ACETAMINOPHEN
  4. Carvedilol 25mg Tablet [Concomitant]
  5. Pantoprazole 40mg Tablet [Concomitant]
  6. Ozempic 1mg Injection [Concomitant]
  7. ATORVASTATIN [Concomitant]
     Active Substance: ATORVASTATIN
  8. Farxiga 10mg Tablet [Concomitant]
  9. GABAPENTIN [Concomitant]
     Active Substance: GABAPENTIN
  10. LANTUS SOLOSTAR [Concomitant]
     Active Substance: INSULIN GLARGINE
  11. Fluticasone 50mcg Nasal Spray [Concomitant]
  12. AMLODIPINE [Concomitant]
     Active Substance: AMLODIPINE BESYLATE
  13. ALBUTEROL [Concomitant]
     Active Substance: ALBUTEROL
  14. Symbicort 160/4.5mcg Inhaler [Concomitant]
  15. Dexcom G7 System [Concomitant]

REACTIONS (3)
  - Hypotension [None]
  - Malaise [None]
  - Dehydration [None]

NARRATIVE: CASE EVENT DATE: 20250922
